FAERS Safety Report 6080230-6 (Version None)
Quarter: 2009Q1

REPORT INFORMATION
  Report Type: 
  Country: None (occurrence: None)
  Receive Date: 20090217
  Receipt Date: 20090211
  Transmission Date: 20090719
  Serious: Yes (Hospitalization, Other)
  Sender: FDA-Public Use
  Company Number: US-ELI_LILLY_AND_COMPANY-US200811004720

PATIENT
  Sex: Male
  Weight: 82.426 kg

DRUGS (17)
  1. HUMALOG [Suspect]
     Dosage: UNK, AS NEEDED
     Dates: end: 20081115
  2. HUMALOG [Suspect]
     Dosage: UNK, OTHER
     Dates: start: 20081115, end: 20081101
  3. HUMALOG [Suspect]
     Dosage: 15 U, UNK
     Dates: start: 20081116, end: 20081116
  4. SODIUM CHLORIDE [Suspect]
  5. NOVOLOG [Concomitant]
     Dates: start: 20081101
  6. INSULIN GLARGINE [Concomitant]
     Dosage: 35 U, UNK
  7. INSULIN DETEMIR [Concomitant]
  8. GABAPENTIN [Concomitant]
     Indication: NEUROPATHY PERIPHERAL
     Dosage: 300 MG, 3/D
  9. HYDROCHLOROTHIAZIDE W/VALSARTAN [Concomitant]
     Indication: HYPERTENSION
     Dosage: 12.5 MG, DAILY (1/D)
     Route: 048
  10. LEVOTHYROXINE SODIUM [Concomitant]
     Indication: HYPOTHYROIDISM
     Dosage: 200 MG, DAILY (1/D)
     Route: 048
  11. ASPIRIN [Concomitant]
     Indication: PROPHYLAXIS
     Dosage: 81 MG, DAILY (1/D)
     Route: 048
  12. BUPROPION HCL [Concomitant]
     Indication: DEPRESSION
     Dosage: 200 MG, DAILY (1/D)
     Route: 048
  13. ERGOCALCIFEROL [Concomitant]
     Indication: VITAMIN D DEFICIENCY
     Dosage: 6000 U, 2/W
     Route: 030
     Dates: start: 20080914
  14. CYANOCOBALAMIN [Concomitant]
     Indication: VITAMIN B12 DEFICIENCY
     Dosage: 1000 UG, UNK
     Route: 030
     Dates: start: 20080914
  15. SIMVASTATIN [Concomitant]
     Indication: HYPOCHOLESTEROLAEMIA
     Dosage: 80 MG, EACH EVENING
     Dates: start: 20080914
  16. TERBINAFINE HCL [Concomitant]
     Indication: ONYCHOMYCOSIS
     Dosage: 250 MG, DAILY (1/D)
     Dates: start: 20081115
  17. TERBINAFINE HCL [Concomitant]
     Indication: TINEA PEDIS
     Dosage: UNK, 2/D
     Dates: start: 20081115

REACTIONS (3)
  - BLOOD GLUCOSE INCREASED [None]
  - DRUG INEFFECTIVE [None]
  - WRONG DRUG ADMINISTERED [None]
